FAERS Safety Report 20055365 (Version 1)
Quarter: 2021Q4

REPORT INFORMATION
  Report Type: Spontaneous
  Country: US (occurrence: US)
  Receive Date: 20211110
  Receipt Date: 20211110
  Transmission Date: 20220303
  Serious: No
  Sender: FDA-Public Use
  Company Number: US-BEH-2021138119

PATIENT
  Age: 42 Year
  Sex: Female

DRUGS (1)
  1. HIZENTRA [Suspect]
     Active Substance: HUMAN IMMUNOGLOBULIN G
     Indication: Immunodeficiency
     Dosage: 10 MILLIGRAM, QW
     Route: 058
     Dates: start: 201907

REACTIONS (8)
  - Urticaria [Unknown]
  - Infusion site pain [Unknown]
  - Infusion site swelling [Unknown]
  - Infusion site discomfort [Unknown]
  - Recalled product administered [Unknown]
  - Recalled product administered [Unknown]
  - Recalled product administered [Unknown]
  - Recalled product administered [Unknown]
